FAERS Safety Report 9695268 (Version 3)
Quarter: 2014Q2

REPORT INFORMATION
  Report Type: Report from Study
  Country: DE (occurrence: DE)
  Receive Date: 20131119
  Receipt Date: 20140429
  Transmission Date: 20141212
  Serious: Yes (Hospitalization)
  Sender: FDA-Public Use
  Company Number: DE-ASTELLAS-2013US011937

PATIENT
  Age: 73 Year
  Sex: Male

DRUGS (2)
  1. ERLOTINIB [Suspect]
     Indication: PANCREATIC CARCINOMA
     Route: 065
     Dates: start: 20121105, end: 20130121
  2. GEMCITABINE HYDROCHLORIDE [Suspect]
     Indication: PANCREATIC CARCINOMA
     Route: 065
     Dates: start: 20121105, end: 20130114

REACTIONS (1)
  - Gastrointestinal toxicity [Recovered/Resolved with Sequelae]
